FAERS Safety Report 8575238-2 (Version None)
Quarter: 2012Q3

REPORT INFORMATION
  Report Type: 
  Country: None (occurrence: None)
  Receive Date: 20120807
  Receipt Date: 20120727
  Transmission Date: 20120928
  Serious: Yes (Other)
  Sender: FDA-Public Use
  Company Number: US-JNJFOC-20120606499

PATIENT
  Sex: Female
  Weight: 62.6 kg

DRUGS (64)
  1. DURAGESIC-100 [Suspect]
     Dosage: 75 UG/HR OR 100 UG/HR
     Route: 062
  2. DURAGESIC-100 [Suspect]
     Indication: SPINAL DISORDER
     Route: 062
     Dates: end: 20040101
  3. FENTANYL-100 [Suspect]
     Indication: RAYNAUD'S PHENOMENON
     Route: 062
     Dates: start: 20090101
  4. FENTANYL-100 [Suspect]
     Dosage: 100 UG/HR + 25 UG/HR
     Route: 062
     Dates: start: 20080101
  5. FENTANYL-100 [Suspect]
     Route: 062
  6. DURAGESIC-100 [Suspect]
     Indication: MIGRAINE
     Route: 062
     Dates: end: 20040101
  7. DURAGESIC-100 [Suspect]
     Dosage: 75 UG/HR OR 100 UG/HR
     Route: 062
  8. DURAGESIC-100 [Suspect]
     Dosage: 75 UG/HR OR 100 UG/HR
     Route: 062
  9. FENTANYL-100 [Suspect]
     Route: 062
  10. FENTANYL-100 [Suspect]
     Route: 062
  11. FENTANYL-100 [Suspect]
     Dosage: 75 UG/HR OR 100 UG/HR
     Route: 062
  12. FENTANYL-100 [Suspect]
     Route: 062
     Dates: start: 20080101
  13. FENTANYL-100 [Suspect]
     Route: 062
  14. DURAGESIC-100 [Suspect]
     Dosage: 100 UG/HR + 25 UG/HR
     Route: 062
     Dates: start: 20090101
  15. DURAGESIC-100 [Suspect]
     Dosage: 100 UG/HR + 25 UG/HR
     Route: 062
     Dates: start: 20080101
  16. DURAGESIC-100 [Suspect]
     Dosage: 75 UG/HR OR 100 UG/HR
     Route: 062
  17. DURAGESIC-100 [Suspect]
     Dosage: 100 UG/HR + 25 UG/HR
     Route: 062
     Dates: start: 20080101
  18. DURAGESIC-100 [Suspect]
     Route: 062
     Dates: end: 20040101
  19. FENTANYL-100 [Suspect]
     Route: 062
     Dates: start: 20080101
  20. FENTANYL-100 [Suspect]
     Dosage: 75 UG/HR OR 100 UG/HR
     Route: 062
  21. FENTANYL-100 [Suspect]
     Indication: SPINAL DISORDER
     Dosage: 100 UG/HR + 25 UG/HR
     Route: 062
     Dates: start: 20080101
  22. FENTANYL-100 [Suspect]
     Indication: FIBROMYALGIA
     Dosage: 100 UG/HR + 25 UG/HR
     Route: 062
     Dates: start: 20080101
  23. DURAGESIC-100 [Suspect]
     Route: 062
  24. DURAGESIC-100 [Suspect]
     Dosage: 100 UG/HR + 25 UG/HR
     Route: 062
     Dates: start: 20080101
  25. DURAGESIC-100 [Suspect]
     Route: 062
     Dates: start: 20080101
  26. FENTANYL-100 [Suspect]
     Dosage: 75 UG/HR OR 100 UG/HR
     Route: 062
  27. FENTANYL-100 [Suspect]
     Route: 062
     Dates: start: 20090101
  28. DURAGESIC-100 [Suspect]
     Dosage: 100 UG/HR + 25 UG/HR
     Route: 062
     Dates: start: 20090101
  29. DURAGESIC-100 [Suspect]
     Route: 062
     Dates: start: 20080101, end: 20090101
  30. DURAGESIC-100 [Suspect]
     Route: 062
  31. DURAGESIC-100 [Suspect]
     Dosage: 75 UG/HR OR 100 UG/HR
     Route: 062
  32. DURAGESIC-100 [Suspect]
     Indication: FIBROMYALGIA
     Route: 062
     Dates: start: 20080101, end: 20090101
  33. DURAGESIC-100 [Suspect]
     Route: 062
     Dates: start: 20080101
  34. DURAGESIC-100 [Suspect]
     Route: 062
  35. DURAGESIC-100 [Suspect]
     Route: 062
  36. FENTANYL-100 [Suspect]
     Indication: MIGRAINE
     Dosage: 100 UG/HR + 25 UG/HR
     Route: 062
     Dates: start: 20080101
  37. FENTANYL-100 [Suspect]
     Route: 062
  38. FENTANYL-100 [Suspect]
     Dosage: 75 UG/HR OR 100 UG/HR
     Route: 062
  39. FENTANYL-100 [Suspect]
     Route: 062
     Dates: start: 20090101
  40. FENTANYL-100 [Suspect]
     Dosage: 75 UG/HR OR 100 UG/HR
     Route: 062
  41. DURAGESIC-100 [Suspect]
     Dosage: 100 UG/HR + 25 UG/HR
     Route: 062
     Dates: start: 20090101
  42. DURAGESIC-100 [Suspect]
     Route: 062
     Dates: start: 20080101, end: 20090101
  43. DURAGESIC-100 [Suspect]
     Route: 062
  44. DURAGESIC-100 [Suspect]
     Dosage: 75 UG/HR OR 100 UG/HR
     Route: 062
  45. DURAGESIC-100 [Suspect]
     Route: 062
  46. DURAGESIC-100 [Suspect]
     Route: 062
     Dates: start: 20080101
  47. DURAGESIC-100 [Suspect]
     Dosage: 100 UG/HR + 25 UG/HR
     Route: 062
     Dates: start: 20080101
  48. DURAGESIC-100 [Suspect]
     Dosage: 75 UG/HR OR 100 UG/HR
     Route: 062
  49. FENTANYL-100 [Suspect]
     Dosage: 75 UG/HR OR 100 UG/HR
     Route: 062
  50. FENTANYL-100 [Suspect]
     Dosage: 75 UG/HR OR 100 UG/HR
     Route: 062
  51. DURAGESIC-100 [Suspect]
     Dosage: 100 UG/HR + 25 UG/HR
     Route: 062
     Dates: start: 20090101
  52. DURAGESIC-100 [Suspect]
     Route: 062
     Dates: start: 20080101
  53. DURAGESIC-100 [Suspect]
     Route: 062
     Dates: start: 20080101, end: 20090101
  54. DURAGESIC-100 [Suspect]
     Route: 062
     Dates: end: 20040101
  55. DURAGESIC-100 [Suspect]
     Dosage: 75 UG/HR OR 100 UG/HR
     Route: 062
  56. DURAGESIC-100 [Suspect]
     Route: 062
  57. FENTANYL-100 [Suspect]
     Route: 062
  58. FENTANYL-100 [Suspect]
     Route: 062
     Dates: start: 20080101
  59. FENTANYL-100 [Suspect]
     Route: 062
     Dates: start: 20090101
  60. FENTANYL-100 [Suspect]
     Route: 062
  61. FENTANYL-100 [Suspect]
     Dosage: 75 UG/HR OR 100 UG/HR
     Route: 062
  62. DURAGESIC-100 [Suspect]
     Indication: RAYNAUD'S PHENOMENON
     Route: 062
  63. FENTANYL-100 [Suspect]
     Route: 062
     Dates: start: 20080101
  64. FENTANYL-100 [Suspect]
     Route: 062

REACTIONS (15)
  - DETOXIFICATION [None]
  - PRODUCT QUALITY ISSUE [None]
  - INCORRECT STORAGE OF DRUG [None]
  - POOR QUALITY DRUG ADMINISTERED [None]
  - ABNORMAL LOSS OF WEIGHT [None]
  - BEDRIDDEN [None]
  - PAIN [None]
  - MALAISE [None]
  - THERAPEUTIC RESPONSE DECREASED [None]
  - DRUG EFFECT PROLONGED [None]
  - FEELING ABNORMAL [None]
  - DRUG INEFFECTIVE [None]
  - WITHDRAWAL SYNDROME [None]
  - EATING DISORDER [None]
  - DRUG ADMINISTERED AT INAPPROPRIATE SITE [None]
